FAERS Safety Report 6985426-4 (Version None)
Quarter: 2010Q3

REPORT INFORMATION
  Report Type: 
  Country: None (occurrence: None)
  Receive Date: 20100915
  Receipt Date: 20100907
  Transmission Date: 20110219
  Serious: Yes (Other)
  Sender: FDA-Public Use
  Company Number: A0803535A

PATIENT
  Sex: Female

DRUGS (6)
  1. ADVAIR DISKUS 100/50 [Suspect]
     Indication: CHRONIC OBSTRUCTIVE PULMONARY DISEASE
     Dosage: 1PUFF TWICE PER DAY
     Route: 055
  2. SINGULAIR [Concomitant]
  3. LIPITOR [Concomitant]
  4. ATENOLOL [Concomitant]
  5. ACIPHEX [Concomitant]
  6. VITAMINS [Concomitant]

REACTIONS (5)
  - APHONIA [None]
  - ASTHMA [None]
  - DRUG INEFFECTIVE [None]
  - DYSPHONIA [None]
  - MALAISE [None]
